FAERS Safety Report 10004409 (Version 2)
Quarter: 2014Q2

REPORT INFORMATION
  Report Type: Spontaneous
  Country: US (occurrence: US)
  Receive Date: 20140312
  Receipt Date: 20140422
  Transmission Date: 20141212
  Serious: Yes (Other)
  Sender: FDA-Public Use
  Company Number: US-PFIZER INC-2014070988

PATIENT
  Age: 76 Year
  Sex: Female
  Weight: 91.16 kg

DRUGS (2)
  1. EFFEXOR XR [Suspect]
     Indication: DEPRESSION
     Dosage: 75 MG, DAILY
  2. EFFEXOR XR [Suspect]
     Indication: ANXIETY

REACTIONS (1)
  - Rheumatoid arthritis [Not Recovered/Not Resolved]
